FAERS Safety Report 5859025-1 (Version None)
Quarter: 2008Q3

REPORT INFORMATION
  Report Type: 
  Country: None (occurrence: None)
  Receive Date: 20080827
  Receipt Date: 20080815
  Transmission Date: 20090109
  Serious: Yes (Life-Threatening, Hospitalization, Disabling)
  Sender: FDA-Public Use
  Company Number: GB-RANBAXY-2008RR-17444

PATIENT

DRUGS (7)
  1. IBUPROFEN TABLETS [Suspect]
     Indication: BONE PAIN
     Dosage: 450 MG, TID
     Route: 048
     Dates: start: 20080528, end: 20080603
  2. ASPIRIN [Concomitant]
     Dosage: 75 MG, QD
  3. ATENOLOL [Concomitant]
  4. METFORMIN HCL [Concomitant]
     Dosage: 500 MG, TID
  5. RAMIPRIL [Concomitant]
  6. RISEDRONATE SODIUM [Concomitant]
  7. SIMVASTATIN [Concomitant]

REACTIONS (1)
  - RENAL IMPAIRMENT [None]
